FAERS Safety Report 4951426-9 (Version None)
Quarter: 2006Q1

REPORT INFORMATION
  Report Type: 
  Country: None (occurrence: None)
  Receive Date: 20060323
  Receipt Date: 20060315
  Transmission Date: 20060701
  Serious: Yes (Hospitalization, Other)
  Sender: FDA-Public Use
  Company Number: BE-JNJFOC-20060304057

PATIENT
  Age: 66 Year
  Sex: Female

DRUGS (9)
  1. INFLIXIMAB [Suspect]
     Indication: RHEUMATOID ARTHRITIS
     Route: 042
  2. METHOTREXATE [Concomitant]
     Route: 023
  3. FOLIC ACID [Concomitant]
     Route: 048
  4. PREDNISONE [Concomitant]
     Dosage: 15-20MG
     Route: 048
  5. PREDNISONE [Concomitant]
     Route: 048
  6. ALPHA LEO [Concomitant]
     Route: 048
  7. CA SANDOZ [Concomitant]
     Route: 048
  8. PIROXICAM [Concomitant]
     Route: 048
  9. ZANTAC [Concomitant]
     Route: 048

REACTIONS (1)
  - NON-HODGKIN'S LYMPHOMA [None]
